FAERS Safety Report 10590142 (Version 1)
Quarter: 2014Q4

REPORT INFORMATION
  Report Type: Spontaneous
  Country: US (occurrence: None)
  Receive Date: 20141117
  Receipt Date: 20141117
  Transmission Date: 20150529
  Serious: Yes (Other)
  Sender: FDA-Public Use
  Company Number: None

PATIENT
  Age: 78 Year
  Sex: Male
  Weight: 63.5 kg

DRUGS (2)
  1. REGLAN [Suspect]
     Active Substance: METOCLOPRAMIDE HYDROCHLORIDE
     Indication: GASTROOESOPHAGEAL REFLUX DISEASE
     Dosage: THREE TIMES DAILY  TAKEN BY MOUTH
     Route: 048
     Dates: start: 20080930, end: 20100731
  2. REGLAN [Suspect]
     Active Substance: METOCLOPRAMIDE HYDROCHLORIDE
     Indication: DIABETES MELLITUS
     Dosage: THREE TIMES DAILY  TAKEN BY MOUTH
     Route: 048
     Dates: start: 20080930, end: 20100731

REACTIONS (2)
  - Speech disorder [None]
  - Parkinson^s disease [None]

NARRATIVE: CASE EVENT DATE: 20080918
